FAERS Safety Report 18610802 (Version 5)
Quarter: 2021Q3

REPORT INFORMATION
  Report Type: Spontaneous
  Country: ES (occurrence: ES)
  Receive Date: 20201214
  Receipt Date: 20210802
  Transmission Date: 20211014
  Serious: Yes (Hospitalization, Other)
  Sender: FDA-Public Use
  Company Number: ES-PFIZER INC-2020486919

PATIENT
  Age: 55 Year
  Sex: Female

DRUGS (4)
  1. ATEZOLIZUMAB. [Concomitant]
     Active Substance: ATEZOLIZUMAB
     Indication: LUNG ADENOCARCINOMA
     Dosage: UNK
     Route: 065
     Dates: start: 20190807, end: 202006
  2. CARBOPLATIN. [Suspect]
     Active Substance: CARBOPLATIN
     Indication: LUNG ADENOCARCINOMA
     Dosage: UNK UNK, 2 CYCLIC
     Route: 065
     Dates: start: 20190807, end: 2019
  3. PACLITAXEL. [Suspect]
     Active Substance: PACLITAXEL
     Indication: LUNG ADENOCARCINOMA
     Dosage: UNK UNK,2 CYCLIC
     Route: 065
     Dates: start: 20190807, end: 2019
  4. BEVACIZUMAB. [Concomitant]
     Active Substance: BEVACIZUMAB
     Indication: LUNG ADENOCARCINOMA
     Dosage: UNK UNK, 2 CYCLIC
     Route: 065
     Dates: start: 20190807, end: 202006

REACTIONS (5)
  - Peripheral sensory neuropathy [Recovering/Resolving]
  - Device related infection [Unknown]
  - Febrile neutropenia [Unknown]
  - Sepsis [Unknown]
  - Asthenia [Unknown]

NARRATIVE: CASE EVENT DATE: 2019
